FAERS Safety Report 23558903 (Version 4)
Quarter: 2024Q1

REPORT INFORMATION
  Report Type: Spontaneous
  Country: US (occurrence: US)
  Receive Date: 20240223
  Receipt Date: 20240320
  Transmission Date: 20240410
  Serious: Yes (Other)
  Sender: FDA-Public Use
  Company Number: US-AMGEN-USASP2024035054

PATIENT
  Sex: Male

DRUGS (3)
  1. REPATHA [Suspect]
     Active Substance: EVOLOCUMAB
     Indication: Product used for unknown indication
     Dosage: UNK
     Route: 065
  2. VASCEPA [Concomitant]
     Active Substance: ICOSAPENT ETHYL
     Indication: Blood cholesterol abnormal
  3. FENOFIBRATE [Concomitant]
     Active Substance: FENOFIBRATE
     Indication: Blood cholesterol abnormal

REACTIONS (6)
  - Hydrocephalus [Unknown]
  - Memory impairment [Unknown]
  - Cerebral disorder [Unknown]
  - Joint injury [Unknown]
  - Aphasia [Unknown]
  - Diarrhoea [Recovered/Resolved]
